FAERS Safety Report 13480822 (Version 4)
Quarter: 2017Q4

REPORT INFORMATION
  Report Type: Report from Study
  Country: DE (occurrence: DE)
  Receive Date: 20170424
  Receipt Date: 20171218
  Transmission Date: 20180320
  Serious: Yes (Hospitalization)
  Sender: FDA-Public Use
  Company Number: DE-ROCHE-1758510

PATIENT
  Age: 79 Year
  Sex: Male
  Weight: 70.6 kg

DRUGS (27)
  1. BENDAMUSTINE [Suspect]
     Active Substance: BENDAMUSTINE
     Indication: CHRONIC LYMPHOCYTIC LEUKAEMIA
     Dosage: LAST DOSE PRIOR TO ADVERSE EVENT : 21/JUL/2015.
     Route: 042
     Dates: start: 20150720
  2. METOHEXAL [Concomitant]
     Active Substance: METOPROLOL SUCCINATE
     Route: 048
     Dates: start: 2007
  3. CEFUROXIM [Concomitant]
     Active Substance: CEFUROXIME
     Route: 048
     Dates: start: 20170331, end: 20170404
  4. AMLODIPIN [Concomitant]
     Active Substance: AMLODIPINE BESYLATE
     Route: 048
  5. KIOVIG [Concomitant]
     Active Substance: HUMAN IMMUNOGLOBULIN G
     Route: 042
     Dates: start: 201109
  6. PREDNISOLON [Concomitant]
     Active Substance: PREDNISOLONE
     Route: 048
     Dates: start: 2015
  7. EBRANTIL [Concomitant]
     Active Substance: URAPIDIL
     Route: 048
     Dates: start: 20170221
  8. HUMALOG [Concomitant]
     Active Substance: INSULIN LISPRO
     Dosage: NACH PLAN
     Route: 058
     Dates: start: 20170222
  9. AMLODIPIN [Concomitant]
     Active Substance: AMLODIPINE BESYLATE
     Route: 048
     Dates: start: 20170214
  10. ACICLOVIR [Concomitant]
     Active Substance: ACYCLOVIR
     Route: 048
     Dates: start: 20150824
  11. ACTRAPID [Concomitant]
     Active Substance: INSULIN HUMAN
     Dosage: NACH PLAN
     Route: 058
     Dates: start: 2007
  12. TORASEMID [Concomitant]
     Active Substance: TORSEMIDE
     Route: 048
     Dates: start: 201510
  13. ASPIRIN. [Concomitant]
     Active Substance: ASPIRIN
     Dosage: ASS 100
     Route: 048
     Dates: start: 20151012
  14. FINASTERID [Concomitant]
     Active Substance: FINASTERIDE
     Route: 048
     Dates: start: 201608
  15. TAMSULOSIN [Concomitant]
     Active Substance: TAMSULOSIN
     Route: 048
     Dates: start: 2010
  16. ULTIBRO [Concomitant]
     Active Substance: GLYCOPYRRONIUM\INDACATEROL
     Dosage: INHALATION
     Route: 065
     Dates: start: 20131207
  17. ALLOPURINOL. [Concomitant]
     Active Substance: ALLOPURINOL
     Route: 048
     Dates: start: 2007
  18. LANTUS [Concomitant]
     Active Substance: INSULIN GLARGINE
     Dosage: NACH PLAN
     Route: 058
     Dates: start: 2007
  19. ELIQUIS [Concomitant]
     Active Substance: APIXABAN
     Route: 048
     Dates: start: 201603
  20. OBINUTUZUMAB. [Suspect]
     Active Substance: OBINUTUZUMAB
     Indication: CHRONIC LYMPHOCYTIC LEUKAEMIA
     Dosage: LAST DOSE PRIOR TO ADVERSE EVENT: 19/JAN/2016.
     Route: 042
     Dates: start: 20150902
  21. COTRIM FORTE [Concomitant]
     Active Substance: SULFAMETHOXAZOLE\TRIMETHOPRIM
     Route: 048
     Dates: start: 20150824
  22. SIMVASTATIN. [Concomitant]
     Active Substance: SIMVASTATIN
     Route: 048
  23. VENETOCLAX. [Suspect]
     Active Substance: VENETOCLAX
     Indication: CHRONIC LYMPHOCYTIC LEUKAEMIA
     Dosage: LAST DOSE PRIOR TO ADVERSE EVENT: 21/JUN/2017 (200 MG) AND 20/JAN/2016 (400 MG).
     Route: 048
     Dates: start: 20151027
  24. RAMIPRIL. [Concomitant]
     Active Substance: RAMIPRIL
     Route: 048
     Dates: start: 2007
  25. PRAVASTATIN. [Concomitant]
     Active Substance: PRAVASTATIN
     Route: 048
     Dates: start: 20160617
  26. OMEPRAZOL [Concomitant]
     Active Substance: OMEPRAZOLE
     Route: 048
     Dates: start: 2016
  27. NITROLINGUAL [Concomitant]
     Active Substance: NITROGLYCERIN
     Route: 065
     Dates: start: 20170221

REACTIONS (4)
  - Urinary tract infection [Recovered/Resolved with Sequelae]
  - Urinary tract infection [Recovered/Resolved with Sequelae]
  - Urinary tract infection [Recovered/Resolved]
  - Transurethral prostatectomy [Recovered/Resolved]

NARRATIVE: CASE EVENT DATE: 20160511
